FAERS Safety Report 13736172 (Version 3)
Quarter: 2017Q3

REPORT INFORMATION
  Report Type: Spontaneous
  Country: JP (occurrence: JP)
  Receive Date: 20170710
  Receipt Date: 20170831
  Transmission Date: 20171127
  Serious: Yes (Hospitalization, Other)
  Sender: FDA-Public Use
  Company Number: JP-DSJP-DSJ-2017-122142

PATIENT

DRUGS (27)
  1. EBRANTIL                           /00631801/ [Concomitant]
     Active Substance: URAPIDIL
     Indication: DYSURIA
     Dosage: 1 DF, QD
     Route: 048
     Dates: start: 20170123, end: 20170624
  2. BELSOMRA [Concomitant]
     Active Substance: SUVOREXANT
     Indication: INSOMNIA
     Dosage: 1 DF, QD
     Route: 048
     Dates: start: 20170612, end: 20170620
  3. METHYCOBAL [Concomitant]
     Active Substance: METHYLCOBALAMIN
     Dosage: UNK
     Route: 065
     Dates: end: 20161217
  4. MUCODYNE [Concomitant]
     Active Substance: CARBOCYSTEINE
     Dosage: UNK
     Route: 065
     Dates: end: 20161217
  5. VANCOMYCIN                         /00314402/ [Suspect]
     Active Substance: VANCOMYCIN
     Indication: PNEUMONIA STAPHYLOCOCCAL
     Dosage: UNK
     Route: 065
  6. POSTERISAN                         /00028601/ [Concomitant]
     Indication: HAEMORRHOIDS
     Dosage: 2 G, QD
     Route: 065
     Dates: start: 20170612, end: 20170707
  7. E KEPPRA [Concomitant]
     Active Substance: LEVETIRACETAM
     Indication: EPILEPSY
     Dosage: UNK
     Route: 065
     Dates: end: 20161217
  8. MIYA-BM [Concomitant]
     Active Substance: CLOSTRIDIUM BUTYRICUM SPORES STRAIN M-55
     Dosage: UNK
     Route: 065
     Dates: end: 20161217
  9. VASOLAN                            /00014302/ [Interacting]
     Active Substance: VERAPAMIL HYDROCHLORIDE
     Indication: TACHYCARDIA
     Dosage: 1 DF, TID
     Route: 048
     Dates: start: 20170225, end: 20170624
  10. AMARYL [Concomitant]
     Active Substance: GLIMEPIRIDE
     Dosage: UNK
     Route: 065
     Dates: end: 20161217
  11. FERROMIA [Concomitant]
     Active Substance: FERROUS CITRATE
     Dosage: UNK
     Route: 065
     Dates: end: 20161217
  12. LIXIANA TABLETS [Suspect]
     Active Substance: EDOXABAN TOSYLATE
     Indication: ATRIAL FIBRILLATION
     Dosage: 30MG/DAY
     Route: 065
     Dates: start: 20161016, end: 20161217
  13. PURSENNID                          /00142207/ [Concomitant]
     Active Substance: SENNOSIDES A AND B
     Indication: CONSTIPATION
     Dosage: 2 DF, QD
     Route: 048
     Dates: start: 20170224, end: 20170624
  14. SAIREITO                           /08000901/ [Concomitant]
     Active Substance: HERBALS
     Dosage: UNK
     Route: 065
     Dates: end: 20161217
  15. METGLUCO [Concomitant]
     Active Substance: METFORMIN HYDROCHLORIDE
     Indication: DIABETES MELLITUS
     Dosage: 1 DF, QD
     Route: 048
     Dates: start: 20170214, end: 20170624
  16. TIAPRIDE                           /00435702/ [Concomitant]
     Indication: DELIRIUM
     Dosage: 1 DF, QD
     Route: 048
     Dates: start: 20170208, end: 20170624
  17. SEIBULE [Concomitant]
     Active Substance: MIGLITOL
     Dosage: UNK
     Route: 065
     Dates: end: 20161217
  18. SEIHAITO [Concomitant]
     Active Substance: HERBALS
     Dosage: UNK
     Route: 065
     Dates: end: 20161217
  19. LIXIANA TABLETS [Interacting]
     Active Substance: EDOXABAN TOSYLATE
     Dosage: 30 MG, QD
     Route: 048
     Dates: start: 20170520, end: 20170621
  20. LOXONIN TABLETS 60MG [Concomitant]
     Active Substance: LOXOPROFEN
     Indication: POLYMYALGIA RHEUMATICA
     Dosage: 60 MG, BID
     Route: 048
     Dates: start: 20170616, end: 20170624
  21. FUROSEMIDE. [Concomitant]
     Active Substance: FUROSEMIDE
     Indication: CARDIAC FAILURE
     Dosage: UNK
     Route: 042
     Dates: start: 20170621, end: 20170629
  22. MAGMITT [Concomitant]
     Active Substance: MAGNESIUM OXIDE
     Indication: CONSTIPATION
     Dosage: 1 DF, QD
     Route: 048
     Dates: start: 20170405, end: 20170624
  23. FUROSEMIDE. [Concomitant]
     Active Substance: FUROSEMIDE
     Dosage: UNK
     Route: 065
     Dates: end: 20161217
  24. YOKUKANSAN [Concomitant]
     Active Substance: HERBALS
     Indication: DELIRIUM
     Dosage: 1 DF, TID
     Route: 048
     Dates: start: 20170612, end: 20170622
  25. TRAZENTA [Concomitant]
     Active Substance: LINAGLIPTIN
     Dosage: UNK
     Route: 065
     Dates: end: 20161217
  26. SPIRONOLACTONE. [Concomitant]
     Active Substance: SPIRONOLACTONE
     Dosage: UNK
     Route: 065
     Dates: end: 20161217
  27. FLAGYL [Concomitant]
     Active Substance: METRONIDAZOLE\METRONIDAZOLE HYDROCHLORIDE
     Indication: PSEUDOMEMBRANOUS COLITIS
     Dosage: UNK
     Route: 065

REACTIONS (11)
  - Acute kidney injury [Recovering/Resolving]
  - Drug eruption [Recovering/Resolving]
  - Cardiac failure [Recovered/Resolved]
  - Brain contusion [Recovering/Resolving]
  - Pseudomembranous colitis [Recovering/Resolving]
  - Drug interaction [Recovered/Resolved]
  - Haemorrhoids [Not Recovered/Not Resolved]
  - Cerebral infarction [Recovering/Resolving]
  - Polymyalgia rheumatica [Recovering/Resolving]
  - Pneumonia staphylococcal [Recovering/Resolving]
  - Insomnia [Recovering/Resolving]

NARRATIVE: CASE EVENT DATE: 2016
